FAERS Safety Report 5747642-9 (Version None)
Quarter: 2008Q2

REPORT INFORMATION
  Report Type: 
  Country: None (occurrence: None)
  Receive Date: 20080523
  Receipt Date: 20080509
  Transmission Date: 20081010
  Serious: Yes (Hospitalization, Other)
  Sender: FDA-Public Use
  Company Number: GB-BAUSCH-2006BL004483

PATIENT
  Age: 68 Year
  Sex: Female
  Weight: 58 kg

DRUGS (9)
  1. PREDNISOLONE [Suspect]
     Indication: RHEUMATOID ARTHRITIS
     Route: 048
     Dates: start: 19960101
  2. ENBREL [Suspect]
     Indication: RHEUMATOID ARTHRITIS
     Dates: start: 20040712, end: 20041101
  3. REMICADE /UNK/ [Suspect]
     Indication: RHEUMATOID ARTHRITIS
     Route: 042
     Dates: start: 20020513, end: 20040305
  4. FOSAMAX ONCE WEEKLY [Concomitant]
     Route: 048
     Dates: start: 20020101
  5. CO-DYDRAMOL [Concomitant]
     Indication: ARTHRALGIA
     Route: 048
  6. LISINOPRIL [Concomitant]
     Indication: HYPERTENSION
     Route: 048
  7. ZOPICLONE [Concomitant]
     Indication: SLEEP DISORDER
     Route: 048
  8. AMITRIPTYLINE HCL [Concomitant]
  9. PLAQUENIL [Concomitant]

REACTIONS (2)
  - BASAL CELL CARCINOMA [None]
  - ECZEMA [None]
